FAERS Safety Report 25796642 (Version 1)
Quarter: 2025Q3

REPORT INFORMATION
  Report Type: Spontaneous
  Country: US (occurrence: US)
  Receive Date: 20250912
  Receipt Date: 20250912
  Transmission Date: 20251020
  Serious: No
  Sender: COREPHARMA LLC
  Company Number: US-CorePharma LLC-2184396

PATIENT
  Age: 25 Year
  Sex: Male
  Weight: 106.24 kg

DRUGS (13)
  1. MELOXICAM [Suspect]
     Active Substance: MELOXICAM
     Indication: Product used for unknown indication
     Dates: start: 202504, end: 20250623
  2. DUPIXENT [Suspect]
     Active Substance: DUPILUMAB
  3. TRIAMCINOLONE ACETONIDE [Concomitant]
     Active Substance: TRIAMCINOLONE ACETONIDE
  4. PROTONIX [Concomitant]
     Active Substance: PANTOPRAZOLE SODIUM
  5. CLOBETASOL PROPIONATE [Concomitant]
     Active Substance: CLOBETASOL PROPIONATE
  6. Minoxide [Concomitant]
  7. DUTASTERIDE [Concomitant]
     Active Substance: DUTASTERIDE
  8. GABAPENTIN [Concomitant]
     Active Substance: GABAPENTIN
  9. TRAZODONE HCL [Concomitant]
     Active Substance: TRAZODONE HYDROCHLORIDE
  10. FINASTERIDE [Concomitant]
     Active Substance: FINASTERIDE
  11. NALTREXONE HYDROCHLORIDE [Concomitant]
     Active Substance: NALTREXONE HYDROCHLORIDE
  12. HYDROXYZINE HYDROCHLORIDE [Concomitant]
     Active Substance: HYDROXYZINE HYDROCHLORIDE
  13. FLUOXETINE HYDROCHLORIDE [Concomitant]
     Active Substance: FLUOXETINE HYDROCHLORIDE

REACTIONS (1)
  - Nausea [Recovered/Resolved]
